FAERS Safety Report 23420507 (Version 3)
Quarter: 2024Q1

REPORT INFORMATION
  Report Type: Spontaneous
  Country: US (occurrence: None)
  Receive Date: 20240119
  Receipt Date: 20240205
  Transmission Date: 20240410
  Serious: Yes (Other)
  Sender: FDA-Public Use
  Company Number: US-ROCHE-3491519

PATIENT
  Age: 77 Year
  Sex: Female

DRUGS (4)
  1. ACTEMRA [Suspect]
     Active Substance: TOCILIZUMAB
     Indication: Giant cell arteritis
     Route: 058
     Dates: start: 20230927, end: 20230927
  2. ACTEMRA [Suspect]
     Active Substance: TOCILIZUMAB
  3. MOTRIN [Concomitant]
     Active Substance: IBUPROFEN
  4. DILTIAZEM [Concomitant]
     Active Substance: DILTIAZEM
     Indication: Hypertension
     Route: 048

REACTIONS (17)
  - Alopecia [Not Recovered/Not Resolved]
  - Brain fog [Not Recovered/Not Resolved]
  - Corneal abrasion [Recovered/Resolved]
  - Herpes zoster [Unknown]
  - White blood cell count decreased [Unknown]
  - Fall [Unknown]
  - Rash [Recovered/Resolved]
  - Contusion [Unknown]
  - Pain in extremity [Unknown]
  - Paraesthesia [Unknown]
  - Burning sensation [Unknown]
  - Oedema peripheral [Unknown]
  - Peripheral swelling [Unknown]
  - Blood thyroid stimulating hormone decreased [Unknown]
  - Blood cholesterol increased [Unknown]
  - Glycosylated haemoglobin increased [Unknown]
  - Platelet count decreased [Unknown]

NARRATIVE: CASE EVENT DATE: 20231201
